FAERS Safety Report 23214408 (Version 1)
Quarter: 2023Q4

REPORT INFORMATION
  Report Type: Spontaneous
  Country: US (occurrence: US)
  Receive Date: 20231121
  Receipt Date: 20231121
  Transmission Date: 20240110
  Serious: No
  Sender: FDA-Public Use
  Company Number: US-BAUSCH-BL-2023-017077

PATIENT
  Age: 81 Year
  Sex: Female

DRUGS (1)
  1. FLUOROURACIL [Suspect]
     Active Substance: FLUOROURACIL
     Indication: Skin cancer
     Dosage: EVERY MORNING AND NIGHT, LEAVE FOR 5 HOURS
     Route: 061

REACTIONS (2)
  - Drug hypersensitivity [Unknown]
  - Application site pain [Unknown]

NARRATIVE: CASE EVENT DATE: 20231001
